FAERS Safety Report 4450610-0 (Version None)
Quarter: 2004Q3

REPORT INFORMATION
  Report Type: 
  Country: None (occurrence: None)
  Receive Date: 20040914
  Receipt Date: 20040901
  Transmission Date: 20050211
  Serious: Yes (Other)
  Sender: FDA-Public Use
  Company Number: 2004-03904

PATIENT
  Age: 46 Year
  Sex: Female

DRUGS (3)
  1. MICROGESTIN FE 1/20 [Suspect]
     Indication: MENSTRUATION IRREGULAR
     Dosage: 1 TABLET, DAILY, ORAL
     Route: 048
     Dates: start: 20040627, end: 20040716
  2. METHYLPREDNISOLONE [Suspect]
     Indication: RASH
     Dosage: ORAL
     Route: 048
     Dates: start: 20040801, end: 20040801
  3. MULTIVITAMINS (ERGOCALCIFEROL, THIAMINE HYDROCHLORIDE, RETINOL, RIBOFL [Concomitant]

REACTIONS (12)
  - COMA [None]
  - CONVULSION [None]
  - DEHYDRATION [None]
  - EYE ROLLING [None]
  - HEADACHE [None]
  - LOCAL SWELLING [None]
  - OROPHARYNGEAL SWELLING [None]
  - PRURITUS GENERALISED [None]
  - PYREXIA [None]
  - RASH GENERALISED [None]
  - SWELLING FACE [None]
  - SWOLLEN TONGUE [None]
